FAERS Safety Report 7920692-X (Version None)
Quarter: 2011Q4

REPORT INFORMATION
  Report Type: 
  Country: None (occurrence: None)
  Receive Date: 20111117
  Receipt Date: 20111104
  Transmission Date: 20120403
  Serious: Yes (Hospitalization, Other)
  Sender: FDA-Public Use
  Company Number: US-BAYER-2011-034221

PATIENT
  Age: 41 Year
  Sex: Female
  Weight: 87.7 kg

DRUGS (8)
  1. FISH OIL [Concomitant]
     Dosage: 1000 MG, DAILY
     Route: 048
  2. VITAMIN E [Concomitant]
     Dosage: 400 IU, DAILY
     Route: 048
  3. KERALAC [Concomitant]
     Dosage: DAILY
     Route: 061
  4. YASMIN [Suspect]
     Indication: CONTRACEPTION
     Dosage: UNK
     Dates: start: 20040101, end: 20070101
  5. YASMIN [Suspect]
     Indication: PREMENSTRUAL SYNDROME
  6. YASMIN [Suspect]
  7. MULTI-VITAMINS [Concomitant]
     Dosage: DAILY
     Route: 048
  8. PRILOSEC [Concomitant]
     Dosage: DAILY
     Route: 048

REACTIONS (5)
  - PAIN [None]
  - DEPRESSION [None]
  - CHOLECYSTITIS [None]
  - INJURY [None]
  - BILIARY DYSKINESIA [None]
